FAERS Safety Report 16213899 (Version 1)
Quarter: 2019Q2

REPORT INFORMATION
  Report Type: Spontaneous
  Country: US (occurrence: US)
  Receive Date: 20190418
  Receipt Date: 20190418
  Transmission Date: 20190711
  Serious: No
  Sender: FDA-Public Use
  Company Number: US-SEBELA IRELAND LIMITED-2018SEB00173

PATIENT
  Age: 43 Year
  Sex: Female

DRUGS (2)
  1. IMURAN [Suspect]
     Active Substance: AZATHIOPRINE
     Indication: POLYMYOSITIS
     Dosage: 50 MG, 2X/DAY
     Route: 048
     Dates: start: 201802, end: 2018
  2. IMURAN [Suspect]
     Active Substance: AZATHIOPRINE
     Dosage: UNK LOWERED DOSE
     Route: 048
     Dates: start: 2018, end: 2018

REACTIONS (5)
  - Pain [Recovered/Resolved]
  - Off label use [Recovered/Resolved]
  - Cough [Recovering/Resolving]
  - Asthenia [Recovered/Resolved]
  - Diarrhoea [Recovered/Resolved]

NARRATIVE: CASE EVENT DATE: 2018
